FAERS Safety Report 4668658-X (Version None)
Quarter: 2005Q2

REPORT INFORMATION
  Report Type: 
  Country: None (occurrence: None)
  Receive Date: 20050523
  Receipt Date: 20040929
  Transmission Date: 20051028
  Serious: No
  Sender: FDA-Public Use
  Company Number: US-GLAXOSMITHKLINE-A0527780A

PATIENT
  Age: 55 Year
  Sex: Female

DRUGS (7)
  1. FLOLAN [Suspect]
     Dosage: .5MG CONTINUOUS
     Route: 042
  2. ALDACTONE [Concomitant]
  3. LEVOTHYROXINE SODIUM [Concomitant]
  4. MOTRIN [Concomitant]
  5. ULTRAM [Concomitant]
  6. FUROSEMIDE [Concomitant]
  7. DIGOXIN [Concomitant]

REACTIONS (2)
  - PHARMACEUTICAL PRODUCT COMPLAINT [None]
  - RASH [None]
